FAERS Safety Report 12605751 (Version 6)
Quarter: 2016Q4

REPORT INFORMATION
  Report Type: Report from Study
  Country: US (occurrence: US)
  Receive Date: 20160729
  Receipt Date: 20161121
  Transmission Date: 20170207
  Serious: Yes (Death, Life-Threatening, Hospitalization, Other)
  Sender: FDA-Public Use
  Company Number: US-BRISTOL-MYERS SQUIBB COMPANY-BMS-2016-061552

PATIENT
  Age: 53 Year
  Sex: Male
  Weight: 76.5 kg

DRUGS (11)
  1. LABETALOL [Concomitant]
     Active Substance: LABETALOL\LABETALOL HYDROCHLORIDE
     Indication: HYPERTENSION
     Dosage: 80 MG, UNK
     Route: 048
     Dates: start: 20160721, end: 20160722
  2. ONDANSETRON HCL [Concomitant]
     Active Substance: ONDANSETRON HYDROCHLORIDE
     Indication: PRODUCT USED FOR UNKNOWN INDICATION
     Dosage: 24 MG, QD
     Route: 042
     Dates: start: 20160721, end: 20160723
  3. CYANOCOBALAMIN. [Concomitant]
     Active Substance: CYANOCOBALAMIN
     Indication: PRODUCT USED FOR UNKNOWN INDICATION
     Dosage: 1 ML, UNK
     Route: 030
     Dates: start: 20160719, end: 20160719
  4. XARELTO [Concomitant]
     Active Substance: RIVAROXABAN
     Indication: EMBOLISM
     Dosage: 1 TAB, UNK
     Route: 048
     Dates: start: 20160708
  5. HYDROCODONE [Concomitant]
     Active Substance: HYDROCODONE
     Indication: AXILLARY PAIN
     Dosage: 4 TAB, QD
     Route: 048
     Dates: start: 20160624
  6. GLUCAGON. [Concomitant]
     Active Substance: GLUCAGON
     Indication: HYPERGLYCAEMIA
     Dosage: 1 DF, QD
     Route: 030
     Dates: start: 20160721, end: 20160722
  7. MORPHINE SULFATE. [Concomitant]
     Active Substance: MORPHINE SULFATE
     Indication: PRODUCT USED FOR UNKNOWN INDICATION
     Dosage: 12 MG, QD
     Route: 042
     Dates: start: 20160721, end: 20160723
  8. FLEXERIL [Concomitant]
     Active Substance: CYCLOBENZAPRINE HYDROCHLORIDE
     Indication: MUSCLE SPASMS
     Dosage: 30 MG, UNK
     Route: 048
     Dates: start: 20160527
  9. NIVOLUMAB [Suspect]
     Active Substance: NIVOLUMAB
     Indication: NON-SMALL CELL LUNG CANCER
     Dosage: 240 MG, UNK
     Route: 042
     Dates: start: 20160527, end: 20160629
  10. ALBUTEROL SULFATE. [Concomitant]
     Active Substance: ALBUTEROL SULFATE
     Indication: COUGH
     Dosage: 6 UNIT, UNK
     Route: 055
     Dates: start: 20160610
  11. LORAZEPAM. [Concomitant]
     Active Substance: LORAZEPAM
     Indication: NAUSEA
     Dosage: 4 TAB, UNK
     Route: 048
     Dates: start: 20160720

REACTIONS (5)
  - Encephalopathy [Not Recovered/Not Resolved]
  - Hypernatraemia [Unknown]
  - Sepsis [Fatal]
  - Malignant neoplasm progression [Fatal]
  - Hyperglycaemia [Not Recovered/Not Resolved]

NARRATIVE: CASE EVENT DATE: 20160621
